FAERS Safety Report 9099366 (Version 1)
Quarter: 2013Q1

REPORT INFORMATION
  Report Type: Report from Study
  Country: CA (occurrence: CA)
  Receive Date: 20130214
  Receipt Date: 20130214
  Transmission Date: 20140127
  Serious: Yes (Other)
  Sender: FDA-Public Use
  Company Number: CA-ROCHE-1190092

PATIENT
  Sex: Male
  Weight: 103.4 kg

DRUGS (9)
  1. ACTEMRA [Suspect]
     Indication: RHEUMATOID ARTHRITIS
     Route: 042
     Dates: start: 20101222
  2. ACTEMRA [Suspect]
     Route: 042
     Dates: start: 20110721
  3. SYMBICORT [Concomitant]
     Route: 065
  4. NASONEX [Concomitant]
  5. SINGULAIR [Concomitant]
  6. TYLENOL #3 (CANADA) [Concomitant]
  7. VITAMIN C [Concomitant]
  8. METHOTREXATE [Concomitant]
  9. FOLIC ACID [Concomitant]

REACTIONS (1)
  - Arthritis [Unknown]
